FAERS Safety Report 6416591-5 (Version None)
Quarter: 2009Q4

REPORT INFORMATION
  Report Type: 
  Country: None (occurrence: None)
  Receive Date: 20091023
  Receipt Date: 20091020
  Transmission Date: 20100525
  Serious: Yes (Death)
  Sender: FDA-Public Use
  Company Number: 2009EU001834

PATIENT
  Age: 56 Year
  Sex: Male

DRUGS (16)
  1. ALEFACEPT INJECTION BLINDED(PLACEBO) [Suspect]
     Indication: RENAL TRANSPLANT
     Dosage: 15 MG, SUBCUTANEOUS
     Route: 058
     Dates: start: 20081117, end: 20090213
  2. PROGRAF [Suspect]
     Indication: RENAL TRANSPLANT
     Dosage: 2 MG, BID,
     Dates: start: 20090310
  3. CELLCEPT [Concomitant]
  4. PREDNISONE [Concomitant]
  5. SPECIAFOLDINE (FOLIC ACID) [Concomitant]
  6. INIPOMP (PANTOPRAZOLE SODIUM) [Concomitant]
  7. BACTRIM [Concomitant]
  8. DISCOTRINE (GLYCERYL TRINITRATE) [Concomitant]
  9. BISOPROLOL FUMARATE [Concomitant]
  10. AMLODIPINE BESYLATE [Concomitant]
  11. ASPIRIN [Concomitant]
  12. NOVOLOG [Concomitant]
  13. INSULATARD (INSULIN HUMAN) [Concomitant]
  14. POTASSIUM CHLORIDE [Concomitant]
  15. LASILIX (FUROSEMIDE SODIUM) [Concomitant]
  16. TRIATEC [Concomitant]

REACTIONS (4)
  - ACUTE PULMONARY OEDEMA [None]
  - CARDIAC ARREST [None]
  - COMA [None]
  - NERVOUS SYSTEM DISORDER [None]
